FAERS Safety Report 25372262 (Version 3)
Quarter: 2025Q3

REPORT INFORMATION
  Report Type: Report from Study
  Country: EU (occurrence: EU)
  Receive Date: 20250529
  Receipt Date: 20250819
  Transmission Date: 20251020
  Serious: Yes (Death, Hospitalization, Other)
  Sender: UCB
  Company Number: EU-UCBSA-2025029677

PATIENT
  Age: 11 Year
  Sex: Female

DRUGS (9)
  1. FINTEPLA [Suspect]
     Active Substance: FENFLURAMINE
     Indication: Lennox-Gastaut syndrome
     Dosage: 6 MILLILITER, 2X/DAY (BID)
     Dates: start: 202409, end: 20250513
  2. BRIVIACT [Concomitant]
     Active Substance: BRIVARACETAM
     Indication: Epilepsy
     Dosage: 75 MILLIGRAM, 2X/DAY (BID)
     Route: 048
     Dates: start: 20240216, end: 20250513
  3. VALPROATE [Concomitant]
     Active Substance: VALPROIC ACID
     Indication: Epilepsy
     Dosage: 450 MILLIGRAM, 2X/DAY (BID)
     Route: 048
     Dates: start: 20241104, end: 20250513
  4. RISPERIDONE [Concomitant]
     Active Substance: RISPERIDONE
     Indication: Product used for unknown indication
  5. LORAZEPAM [Concomitant]
     Active Substance: LORAZEPAM
     Indication: Product used for unknown indication
  6. CHOLECALCIFEROL [Concomitant]
     Active Substance: CHOLECALCIFEROL
     Indication: Product used for unknown indication
  7. DIAZEPAM [Concomitant]
     Active Substance: DIAZEPAM
     Indication: Product used for unknown indication
  8. MIDAZOLAM [Concomitant]
     Active Substance: MIDAZOLAM
     Indication: Product used for unknown indication
  9. BISACODYL [Concomitant]
     Active Substance: BISACODYL
     Indication: Product used for unknown indication

REACTIONS (11)
  - Lennox-Gastaut syndrome [Fatal]
  - Discomfort [Fatal]
  - Constipation [Fatal]
  - Epilepsy [Fatal]
  - Gastrointestinal motility disorder [Fatal]
  - Respiratory distress [Not Recovered/Not Resolved]
  - Scoliosis [Not Recovered/Not Resolved]
  - Intellectual disability [Not Recovered/Not Resolved]
  - Gastrointestinal disorder [Unknown]
  - Colonic lavage [Unknown]
  - Somnolence [Recovered/Resolved]

NARRATIVE: CASE EVENT DATE: 20230612
